FAERS Safety Report 21878092 (Version 4)
Quarter: 2023Q1

REPORT INFORMATION
  Report Type: Spontaneous
  Country: TR (occurrence: TR)
  Receive Date: 20230118
  Receipt Date: 20230221
  Transmission Date: 20230418
  Serious: Yes (Life-Threatening, Other)
  Sender: FDA-Public Use
  Company Number: TR-PFIZER INC-PV202300007502

PATIENT
  Age: 14 Day
  Sex: Male

DRUGS (2)
  1. VANCOMYCIN HYDROCHLORIDE [Suspect]
     Active Substance: VANCOMYCIN HYDROCHLORIDE
     Indication: Sepsis neonatal
     Dosage: 10 MG/KG
  2. AMIKACIN [Concomitant]
     Active Substance: AMIKACIN
     Dosage: UNK

REACTIONS (3)
  - Anaphylactic reaction [Recovered/Resolved]
  - Circulatory failure neonatal [Recovered/Resolved]
  - Off label use [Unknown]
